FAERS Safety Report 7246199-3 (Version None)
Quarter: 2011Q1

REPORT INFORMATION
  Report Type: 
  Country: None (occurrence: None)
  Receive Date: 20110126
  Receipt Date: 20110120
  Transmission Date: 20110831
  Serious: Yes (Life-Threatening)
  Sender: FDA-Public Use
  Company Number: B0694091A

PATIENT
  Sex: Female

DRUGS (4)
  1. MALARONE [Suspect]
     Indication: MALARIA PROPHYLAXIS
     Route: 048
     Dates: start: 20101217, end: 20101220
  2. DIPHTHERIA + POLIOMYELITIS VACCINE + TETANUS VACCINE [Concomitant]
     Dates: start: 20101201
  3. STAMARIL [Concomitant]
     Dates: start: 20101201
  4. TWINRIX [Concomitant]
     Dates: start: 20101201

REACTIONS (5)
  - CHOKING [None]
  - INFLAMMATION [None]
  - ANGIOEDEMA [None]
  - ABNORMAL SENSATION IN EYE [None]
  - SWELLING FACE [None]
